FAERS Safety Report 24263383 (Version 15)
Quarter: 2025Q1

REPORT INFORMATION
  Report Type: Spontaneous
  Country: PL (occurrence: PL)
  Receive Date: 20240829
  Receipt Date: 20250203
  Transmission Date: 20250408
  Serious: Yes (Hospitalization, Other)
  Sender: MYLAN
  Company Number: PL-SYNOPTIS-050-L-0003

PATIENT
  Age: 31 Year
  Sex: Female

DRUGS (51)
  1. AMLODIPINE [Interacting]
     Active Substance: AMLODIPINE BESYLATE
     Indication: Hypertension
     Dosage: 10 MILLIGRAM, QD
     Route: 065
  2. SERTRALINE [Interacting]
     Active Substance: SERTRALINE HYDROCHLORIDE
     Indication: Depression
     Dosage: 100 MILLIGRAM, QD (100 MG/D IN THE MORNING)
     Route: 065
  3. SERTRALINE [Interacting]
     Active Substance: SERTRALINE HYDROCHLORIDE
     Indication: Insomnia
  4. AMOXICILLIN\CLAVULANIC ACID [Interacting]
     Active Substance: AMOXICILLIN\CLAVULANIC ACID
     Indication: Oropharyngeal pain
     Dosage: 1 GRAM, Q8H (3 GRAM, QD)
     Route: 048
  5. AMOXICILLIN\CLAVULANIC ACID [Interacting]
     Active Substance: AMOXICILLIN\CLAVULANIC ACID
     Indication: Dysphagia
  6. AMOXICILLIN\CLAVULANIC ACID [Interacting]
     Active Substance: AMOXICILLIN\CLAVULANIC ACID
     Indication: Throat irritation
  7. ZOLPIDEM [Interacting]
     Active Substance: ZOLPIDEM TARTRATE
     Indication: Mental disorder
     Route: 065
  8. ZOLPIDEM [Interacting]
     Active Substance: ZOLPIDEM TARTRATE
     Indication: Weight control
  9. ZOLPIDEM [Interacting]
     Active Substance: ZOLPIDEM TARTRATE
     Indication: Insomnia
  10. ZOLPIDEM [Interacting]
     Active Substance: ZOLPIDEM TARTRATE
     Indication: Depression
  11. MIRTAZAPINE [Interacting]
     Active Substance: MIRTAZAPINE
     Indication: Insomnia
     Dosage: 30 MILLIGRAM, QD (30 MG OF MIRTAZAPINE AT NIGHT)
     Route: 065
  12. MIRTAZAPINE [Interacting]
     Active Substance: MIRTAZAPINE
     Indication: Depression
  13. RAMIPRIL [Interacting]
     Active Substance: RAMIPRIL
     Indication: Hypertension
     Dosage: 10 MILLIGRAM, QD
     Route: 065
  14. BUPROPION [Interacting]
     Active Substance: BUPROPION
     Indication: Insomnia
     Route: 065
  15. BUPROPION [Interacting]
     Active Substance: BUPROPION
     Indication: Depression
  16. BUPROPION [Interacting]
     Active Substance: BUPROPION
     Indication: Weight control
  17. BUPROPION [Interacting]
     Active Substance: BUPROPION
     Indication: Mental disorder
  18. DICLOFENAC [Interacting]
     Active Substance: DICLOFENAC
     Indication: Dysphagia
     Route: 065
  19. DICLOFENAC [Interacting]
     Active Substance: DICLOFENAC
     Indication: Throat irritation
  20. DICLOFENAC [Interacting]
     Active Substance: DICLOFENAC
     Indication: Oropharyngeal pain
  21. KETOPROFEN [Suspect]
     Active Substance: KETOPROFEN
     Indication: Oropharyngeal pain
     Route: 042
  22. ACETAMINOPHEN [Interacting]
     Active Substance: ACETAMINOPHEN
     Indication: Throat irritation
     Dosage: 1 GRAM, Q8H (3 GRAM, QD (3X1 GM)), 1 G, TID
     Route: 048
  23. ACETAMINOPHEN [Interacting]
     Active Substance: ACETAMINOPHEN
     Indication: Dysphagia
  24. ACETAMINOPHEN [Interacting]
     Active Substance: ACETAMINOPHEN
     Indication: Oropharyngeal pain
  25. ACETAMINOPHEN [Interacting]
     Active Substance: ACETAMINOPHEN
     Indication: Burning sensation
  26. METAMIZOLE [Suspect]
     Active Substance: METAMIZOLE
     Indication: Oropharyngeal pain
     Route: 042
  27. AMOXICILLIN [Interacting]
     Active Substance: AMOXICILLIN
     Indication: Oropharyngeal pain
     Dosage: 1 GRAM, Q8H (3 GRAM, QD (3X1 GM))
     Route: 048
  28. AMOXICILLIN [Interacting]
     Active Substance: AMOXICILLIN
     Indication: Throat irritation
  29. AMOXICILLIN [Interacting]
     Active Substance: AMOXICILLIN
     Indication: Dysphagia
  30. AMOXICILLIN [Interacting]
     Active Substance: AMOXICILLIN
     Indication: Burning sensation
  31. BUPROPION HYDROCHLORIDE\NALTREXONE HYDROCHLORIDE [Interacting]
     Active Substance: BUPROPION HYDROCHLORIDE\NALTREXONE HYDROCHLORIDE
     Indication: Weight control
     Route: 065
  32. BUPROPION HYDROCHLORIDE\NALTREXONE HYDROCHLORIDE [Interacting]
     Active Substance: BUPROPION HYDROCHLORIDE\NALTREXONE HYDROCHLORIDE
     Indication: Mental disorder
  33. SEMAGLUTIDE [Suspect]
     Active Substance: SEMAGLUTIDE
     Indication: Weight control
     Route: 065
  34. SEMAGLUTIDE [Suspect]
     Active Substance: SEMAGLUTIDE
     Indication: Mental disorder
  35. SEMAGLUTIDE [Suspect]
     Active Substance: SEMAGLUTIDE
     Indication: Insomnia
  36. SEMAGLUTIDE [Suspect]
     Active Substance: SEMAGLUTIDE
     Indication: Depression
  37. NALTREXONE [Interacting]
     Active Substance: NALTREXONE
     Indication: Insomnia
     Route: 065
  38. NALTREXONE [Interacting]
     Active Substance: NALTREXONE
     Indication: Depression
  39. LIDOCAINE HYDROCHLORIDE [Suspect]
     Active Substance: LIDOCAINE HYDROCHLORIDE
     Indication: Oropharyngeal pain
     Route: 065
  40. LIDOCAINE HYDROCHLORIDE [Suspect]
     Active Substance: LIDOCAINE HYDROCHLORIDE
     Indication: Dysphagia
  41. LIDOCAINE HYDROCHLORIDE [Suspect]
     Active Substance: LIDOCAINE HYDROCHLORIDE
     Indication: Throat irritation
  42. AMBROXOL [Suspect]
     Active Substance: AMBROXOL
     Indication: Oropharyngeal pain
     Route: 065
  43. AMBROXOL [Suspect]
     Active Substance: AMBROXOL
     Indication: Mental disorder
  44. AMBROXOL [Suspect]
     Active Substance: AMBROXOL
     Indication: Neuralgia
  45. MAGNESIUM SULFATE [Concomitant]
     Active Substance: MAGNESIUM SULFATE
     Route: 042
  46. ALPHA LIPOIC ACID [Concomitant]
     Active Substance: .ALPHA.-LIPOIC ACID
     Route: 042
  47. TIRZEPATIDE [Concomitant]
     Active Substance: TIRZEPATIDE
     Route: 065
  48. DULOXETINE [Concomitant]
     Active Substance: DULOXETINE
     Route: 065
  49. INDAPAMIDE [Concomitant]
     Active Substance: INDAPAMIDE
     Indication: Product used for unknown indication
     Route: 065
  50. TELMISARTAN [Concomitant]
     Active Substance: TELMISARTAN
     Indication: Product used for unknown indication
     Route: 065
  51. INDAPAMIDE;TELMISARTAN [Concomitant]
     Route: 065

REACTIONS (20)
  - Mental disorder [Unknown]
  - Oropharyngeal pain [Recovering/Resolving]
  - Dysphagia [Recovering/Resolving]
  - Condition aggravated [Recovering/Resolving]
  - Food interaction [Recovering/Resolving]
  - Drug interaction [Recovering/Resolving]
  - Contraindicated product administered [Unknown]
  - Labelled drug-drug interaction medication error [Unknown]
  - Burning sensation [Unknown]
  - Medication error [Unknown]
  - Pain [Recovering/Resolving]
  - Throat irritation [Recovering/Resolving]
  - Drug ineffective [Unknown]
  - Drug intolerance [Unknown]
  - Off label use [Unknown]
  - Emotional distress [Unknown]
  - Increased appetite [Unknown]
  - Nausea [Unknown]
  - Weight increased [Unknown]
  - Abdominal pain [Unknown]
